FAERS Safety Report 21952465 (Version 2)
Quarter: 2023Q1

REPORT INFORMATION
  Report Type: Report from Study
  Country: TR (occurrence: TR)
  Receive Date: 20230203
  Receipt Date: 20230301
  Transmission Date: 20230418
  Serious: Yes (Hospitalization)
  Sender: FDA-Public Use
  Company Number: TR-GILEAD-2023-0611660

PATIENT
  Sex: Male
  Weight: 72 kg

DRUGS (16)
  1. SACITUZUMAB GOVITECAN-HZIY [Suspect]
     Active Substance: SACITUZUMAB GOVITECAN-HZIY
     Indication: Non-small cell lung cancer
     Dosage: 720 MG
     Route: 042
     Dates: start: 20221222, end: 20221222
  2. SACITUZUMAB GOVITECAN-HZIY [Suspect]
     Active Substance: SACITUZUMAB GOVITECAN-HZIY
     Dosage: 720 MG
     Route: 042
     Dates: start: 20221229, end: 20221229
  3. NEUPOGEN [Concomitant]
     Active Substance: FILGRASTIM
     Indication: Prophylaxis
     Route: 058
     Dates: start: 20221224, end: 20221226
  4. NEXIUM I.V. [Concomitant]
     Active Substance: ESOMEPRAZOLE SODIUM
     Indication: Prophylaxis
     Route: 048
     Dates: start: 20221222
  5. ACETAMINOPHEN\CAFFEINE\CODEINE PHOSPHATE [Concomitant]
     Active Substance: ACETAMINOPHEN\CAFFEINE\CODEINE PHOSPHATE
     Indication: Prophylaxis
     Route: 048
     Dates: start: 20221222
  6. KYTRIL [Concomitant]
     Active Substance: GRANISETRON HYDROCHLORIDE
     Indication: Prophylaxis
     Route: 042
     Dates: start: 20230103
  7. ANDOREX [Concomitant]
     Indication: Oral pain
     Route: 048
     Dates: start: 20230102, end: 20230114
  8. NYSTATIN [Concomitant]
     Active Substance: NYSTATIN
     Indication: Oral pain
     Route: 048
     Dates: start: 20230102, end: 20230114
  9. XGEVA [Concomitant]
     Active Substance: DENOSUMAB
     Indication: Prophylaxis
     Route: 030
     Dates: start: 20221223, end: 20221223
  10. PROGAS [Concomitant]
     Indication: Prophylaxis
     Route: 042
     Dates: start: 20230103, end: 20230116
  11. MINERALS\VITAMINS [Concomitant]
     Active Substance: MINERALS\VITAMINS
     Indication: Prophylaxis
     Route: 042
     Dates: start: 20230103, end: 20230117
  12. GRANSET [Concomitant]
     Indication: Prophylaxis
     Route: 042
     Dates: start: 20230103, end: 20230117
  13. ESOMEPRAZOLE [Concomitant]
     Active Substance: ESOMEPRAZOLE
     Indication: Prophylaxis
     Route: 048
     Dates: start: 20221222, end: 20230103
  14. ACETAMINOPHEN [Concomitant]
     Active Substance: ACETAMINOPHEN
     Indication: Prophylaxis
     Route: 048
     Dates: start: 20221222, end: 20230103
  15. DICLOFENAC [Concomitant]
     Active Substance: DICLOFENAC
     Indication: Prophylaxis
     Route: 048
     Dates: start: 20221222, end: 20230103
  16. PANTOPRAZOLE [Concomitant]
     Active Substance: PANTOPRAZOLE
     Indication: Prophylaxis
     Route: 042
     Dates: start: 20230103, end: 20230117

REACTIONS (1)
  - Febrile neutropenia [Recovered/Resolved]

NARRATIVE: CASE EVENT DATE: 20230103
